FAERS Safety Report 9820379 (Version 1)
Quarter: 2014Q1

REPORT INFORMATION
  Report Type: Spontaneous
  Country: US (occurrence: None)
  Receive Date: 20140114
  Receipt Date: 20140114
  Transmission Date: 20141002
  Serious: No
  Sender: FDA-Public Use
  Company Number: None

PATIENT
  Age: 66 None
  Sex: Female

DRUGS (10)
  1. NEUPRO [Suspect]
     Indication: RESTLESS LEGS SYNDROME
     Dosage: 8 MG/24 HRS 30 T QDAY APPLIED TO SKIN
     Dates: start: 201306, end: 201312
  2. KCL [Concomitant]
  3. LEVOTHYROXINE [Concomitant]
  4. NABUMETONE [Concomitant]
  5. LEXAPRO [Concomitant]
  6. EVOXAC [Concomitant]
  7. MAXZIDE [Concomitant]
  8. GEMFIBROZIL [Concomitant]
  9. MONTELUKAST [Concomitant]
  10. ROPINIROLE [Concomitant]

REACTIONS (6)
  - Application site erythema [None]
  - Application site swelling [None]
  - Application site pruritus [None]
  - Application site discharge [None]
  - Application site exfoliation [None]
  - Application site scab [None]
